FAERS Safety Report 10480213 (Version 1)
Quarter: 2014Q3

REPORT INFORMATION
  Report Type: Spontaneous
  Country: US (occurrence: US)
  Receive Date: 20140929
  Receipt Date: 20140929
  Transmission Date: 20150326
  Serious: Yes (Other)
  Sender: FDA-Public Use
  Company Number: US-BRISTOL-MYERS SQUIBB COMPANY-21429097

PATIENT
  Age: 62 Year
  Sex: Male
  Weight: 92.42 kg

DRUGS (4)
  1. AMARYL [Concomitant]
     Active Substance: GLIMEPIRIDE
  2. BYDUREON [Suspect]
     Active Substance: EXENATIDE
     Indication: TYPE 2 DIABETES MELLITUS
     Dosage: INJECTIONS?ONGOING
     Route: 058
     Dates: start: 2013
  3. METFORMIN HCL [Concomitant]
     Active Substance: METFORMIN HYDROCHLORIDE
  4. CLARITIN [Concomitant]
     Active Substance: LORATADINE

REACTIONS (2)
  - Atrial flutter [Unknown]
  - Weight decreased [Unknown]
